FAERS Safety Report 5504047-3 (Version None)
Quarter: 2007Q4

REPORT INFORMATION
  Report Type: 
  Country: None (occurrence: None)
  Receive Date: 20071101
  Receipt Date: 20071031
  Transmission Date: 20080405
  Serious: Yes (Life-Threatening)
  Sender: FDA-Public Use
  Company Number: AU-BRISTOL-MYERS SQUIBB COMPANY-13965165

PATIENT
  Age: 79 Year
  Sex: Male
  Weight: 55 kg

DRUGS (4)
  1. IRBESARTAN [Suspect]
     Indication: ESSENTIAL HYPERTENSION
     Dates: end: 20051019
  2. SIMVASTATIN [Suspect]
     Indication: METABOLIC DISORDER
     Route: 048
     Dates: end: 20051019
  3. ASPIRIN [Concomitant]
  4. FOLIC ACID [Concomitant]
     Dates: end: 20051019

REACTIONS (2)
  - ALVEOLITIS ALLERGIC [None]
  - DYSPNOEA [None]
